FAERS Safety Report 10301926 (Version 1)
Quarter: 2014Q3

REPORT INFORMATION
  Report Type: Report from Study
  Country: BR (occurrence: BR)
  Receive Date: 20140714
  Receipt Date: 20140714
  Transmission Date: 20150326
  Serious: Yes (Disabling, Other)
  Sender: FDA-Public Use
  Company Number: PHHY2014BR086048

PATIENT
  Sex: Female
  Weight: 50 kg

DRUGS (4)
  1. ACLASTA [Suspect]
     Active Substance: ZOLEDRONIC ACID
     Indication: OSTEOPOROSIS
     Dosage: ONCE PER YEAR
     Route: 042
     Dates: start: 2013
  2. VITAMIN C [Concomitant]
     Active Substance: ASCORBIC ACID
     Indication: HYPOVITAMINOSIS
     Dosage: 2 TABLETS DAILY
  3. FERROUS SULFATE [Concomitant]
     Active Substance: FERROUS SULFATE\FERROUS SULFATE, DRIED
     Indication: ANAEMIA
     Dosage: 2 TABLETS DAILY
  4. COMPLEX B [Concomitant]
     Indication: HYPOVITAMINOSIS
     Dosage: 1 TABLET DAILY

REACTIONS (1)
  - Abasia [Not Recovered/Not Resolved]
